FAERS Safety Report 15390473 (Version 10)
Quarter: 2018Q4

REPORT INFORMATION
  Report Type: Spontaneous
  Country: CA (occurrence: CA)
  Receive Date: 20180917
  Receipt Date: 20181220
  Transmission Date: 20190204
  Serious: Yes (Other)
  Sender: FDA-Public Use
  Company Number: CA-CELLTRION INC.-2018CA022488

PATIENT

DRUGS (9)
  1. INFLECTRA [Suspect]
     Active Substance: INFLIXIMAB-DYYB
     Dosage: 700 MG, EVERY 8 WEEKS;
     Route: 042
     Dates: start: 20181017
  2. MERCAPTOPURINE. [Concomitant]
     Active Substance: MERCAPTOPURINE
     Dosage: UNK
  3. INFLECTRA [Suspect]
     Active Substance: INFLIXIMAB-DYYB
     Dosage: 700 MG, EVERY 8 WEEKS;
     Route: 042
     Dates: start: 20181206
  4. INFLECTRA [Suspect]
     Active Substance: INFLIXIMAB-DYYB
     Indication: CROHN^S DISEASE
     Dosage: 300 MG, EVERY 0, 2, 6 WEEKS, THEN EVERY 8 WEEKS
     Route: 042
     Dates: start: 20180831
  5. INFLECTRA [Suspect]
     Active Substance: INFLIXIMAB-DYYB
     Indication: COLITIS ULCERATIVE
     Dosage: 300 MG, (EVERY 0, 2, 6 WEEKS, THEN EVERY 8 WEEKS
     Route: 042
     Dates: start: 20180831
  6. INFLECTRA [Suspect]
     Active Substance: INFLIXIMAB-DYYB
     Dosage: 700 MG, EVERY 8 WEEKS;
     Route: 042
     Dates: start: 20181017
  7. INFLECTRA [Suspect]
     Active Substance: INFLIXIMAB-DYYB
     Dosage: 300 MG, (EVERY 0, 2, 6 WEEKS, THEN EVERY 8 WEEKS
     Route: 065
     Dates: start: 20180913, end: 20180913
  8. PREDNISONE. [Concomitant]
     Active Substance: PREDNISONE
     Dosage: UNK
  9. METRONIDAZOLE. [Concomitant]
     Active Substance: METRONIDAZOLE
     Dosage: UNK
     Dates: start: 201811

REACTIONS (30)
  - Eye disorder [Unknown]
  - Feeling cold [Not Recovered/Not Resolved]
  - Musculoskeletal pain [Unknown]
  - Erythema [Not Recovered/Not Resolved]
  - Anal fissure [Unknown]
  - Eyelid margin crusting [Unknown]
  - Distractibility [Unknown]
  - Pyrexia [Unknown]
  - Eye discharge [Unknown]
  - Swelling face [Unknown]
  - Dizziness [Unknown]
  - Fistula [Unknown]
  - Lacrimation increased [Unknown]
  - Sneezing [Not Recovered/Not Resolved]
  - Flushing [Unknown]
  - Nausea [Unknown]
  - Weight increased [Unknown]
  - Product use issue [Unknown]
  - Photophobia [Not Recovered/Not Resolved]
  - Drug effect delayed [Unknown]
  - Incorrect dose administered [Unknown]
  - Somnolence [Unknown]
  - Acne [Not Recovered/Not Resolved]
  - Headache [Unknown]
  - Abscess [Unknown]
  - Abdominal discomfort [Unknown]
  - Ocular hyperaemia [Unknown]
  - Rash [Unknown]
  - Fatigue [Unknown]
  - Eye irritation [Recovering/Resolving]

NARRATIVE: CASE EVENT DATE: 20180831
